FAERS Safety Report 23160990 (Version 4)
Quarter: 2023Q4

REPORT INFORMATION
  Report Type: Spontaneous
  Country: US (occurrence: US)
  Receive Date: 20231108
  Receipt Date: 20231202
  Transmission Date: 20240109
  Serious: No
  Sender: FDA-Public Use
  Company Number: US-SANOFI-01824703

PATIENT
  Sex: Male

DRUGS (1)
  1. DUPIXENT [Suspect]
     Active Substance: DUPILUMAB
     Indication: Neoplasm prophylaxis
     Dosage: 300 MG
     Dates: start: 2022

REACTIONS (5)
  - Injection site swelling [Unknown]
  - Injection site pain [Unknown]
  - Product use in unapproved indication [Unknown]
  - Exposure via skin contact [Unknown]
  - Accidental exposure to product [Unknown]
